FAERS Safety Report 9495878 (Version 1)
Quarter: 2013Q3

REPORT INFORMATION
  Report Type: Spontaneous
  Country: US (occurrence: US)
  Receive Date: 20130903
  Receipt Date: 20130903
  Transmission Date: 20140515
  Serious: No
  Sender: FDA-Public Use
  Company Number: US-009507513-1308USA014290

PATIENT
  Sex: Male

DRUGS (2)
  1. SAPHRIS [Suspect]
     Dosage: UNK
     Route: 060
  2. SAPHRIS [Suspect]
     Dosage: BLACK CHERRY
     Route: 060

REACTIONS (2)
  - Dysgeusia [Unknown]
  - Product taste abnormal [Unknown]
